FAERS Safety Report 8904223 (Version 2)
Quarter: 2013Q1

REPORT INFORMATION
  Report Type: Spontaneous
  Country: US (occurrence: US)
  Receive Date: 20121112
  Receipt Date: 20130319
  Transmission Date: 20140127
  Serious: No
  Sender: FDA-Public Use
  Company Number: US-PFIZER INC-2012277994

PATIENT
  Age: 65 Year
  Sex: Male
  Weight: 94 kg

DRUGS (6)
  1. INLYTA [Suspect]
     Indication: RENAL CELL CARCINOMA
     Dosage: 5 MG, 2X/DAY
     Dates: start: 20120807
  2. MORPHINE SULFATE [Suspect]
     Dosage: UNK
  3. LEVOTHYROXINE SODIUM [Interacting]
     Indication: THYROID DISORDER
     Dosage: 100 UG, DAILY
  4. MINOXIDIL [Interacting]
     Indication: BLOOD PRESSURE ABNORMAL
     Dosage: 5 MG, 2X/DAY
  5. METOPROLOL [Interacting]
     Indication: BLOOD PRESSURE ABNORMAL
     Dosage: 25 MG, 2X/DAY
  6. DIOVAN [Interacting]
     Indication: BLOOD PRESSURE ABNORMAL
     Dosage: 160 MG, DAILY

REACTIONS (6)
  - Drug interaction [Unknown]
  - Urticaria [Not Recovered/Not Resolved]
  - Rash [Not Recovered/Not Resolved]
  - Pruritus [Not Recovered/Not Resolved]
  - Disease progression [Unknown]
  - Renal cell carcinoma [Unknown]
